FAERS Safety Report 20149568 (Version 2)
Quarter: 2022Q1

REPORT INFORMATION
  Report Type: Spontaneous
  Country: JP (occurrence: JP)
  Receive Date: 20211205
  Receipt Date: 20220117
  Transmission Date: 20220423
  Serious: Yes (Death, Other)
  Sender: FDA-Public Use
  Company Number: JP-ABBVIE-21K-087-4084853-00

PATIENT
  Age: 34 Year
  Sex: Female

DRUGS (3)
  1. VENCLEXTA [Suspect]
     Active Substance: VENETOCLAX
     Indication: Acute myeloid leukaemia refractory
     Route: 048
     Dates: start: 20210911, end: 20210916
  2. CYTARABINE [Suspect]
     Active Substance: CYTARABINE
     Indication: Product used for unknown indication
     Route: 065
     Dates: end: 20210917
  3. AZACITIDINE [Suspect]
     Active Substance: AZACITIDINE
     Indication: Product used for unknown indication
     Route: 041
     Dates: start: 20210911

REACTIONS (10)
  - Altered state of consciousness [Fatal]
  - Cerebral haemorrhage [Fatal]
  - Disseminated intravascular coagulation [Fatal]
  - Coma [Unknown]
  - Acute myeloid leukaemia [Unknown]
  - White blood cell count increased [Unknown]
  - Drug ineffective [Unknown]
  - Aphasia [Unknown]
  - Hemiplegia [Unknown]
  - Brain oedema [Unknown]

NARRATIVE: CASE EVENT DATE: 20210901
